FAERS Safety Report 7210997-2 (Version None)
Quarter: 2011Q1

REPORT INFORMATION
  Report Type: 
  Country: None (occurrence: None)
  Receive Date: 20110105
  Receipt Date: 20101228
  Transmission Date: 20110831
  Serious: Yes (Hospitalization)
  Sender: FDA-Public Use
  Company Number: B0691122A

PATIENT
  Sex: Male
  Weight: 74 kg

DRUGS (6)
  1. ZOLOFT [Suspect]
     Indication: DEPRESSIVE SYMPTOM
     Dosage: 25MG PER DAY
     Route: 048
     Dates: start: 20090101, end: 20090612
  2. ADANCOR [Suspect]
     Indication: PRODUCT USED FOR UNKNOWN INDICATION
     Dosage: 5MG TWICE PER DAY
     Route: 048
     Dates: end: 20090601
  3. ACEBUTOLOL HYDROCHLORIDE [Suspect]
     Indication: HYPERTENSION
     Dosage: 100MG TWICE PER DAY
     Route: 065
     Dates: end: 20090601
  4. AVODART [Suspect]
     Indication: PRODUCT USED FOR UNKNOWN INDICATION
     Dosage: .5MG PER DAY
     Route: 048
     Dates: end: 20090601
  5. PLAVIX [Concomitant]
     Dosage: 75MG PER DAY
     Route: 065
  6. LANSOPRAZOLE [Suspect]
     Indication: PRODUCT USED FOR UNKNOWN INDICATION
     Dosage: 30MG PER DAY
     Route: 048
     Dates: end: 20090601

REACTIONS (5)
  - HYPONATRAEMIA [None]
  - APRAXIA [None]
  - MEMORY IMPAIRMENT [None]
  - SOMNOLENCE [None]
  - CONFUSIONAL STATE [None]
